FAERS Safety Report 20873042 (Version 1)
Quarter: 2022Q2

REPORT INFORMATION
  Report Type: Spontaneous
  Country: CN (occurrence: CN)
  Receive Date: 20220525
  Receipt Date: 20220525
  Transmission Date: 20220721
  Serious: Yes (Other)
  Sender: FDA-Public Use
  Company Number: CN-PFIZER INC-202200727153

PATIENT
  Age: 47 Year
  Sex: Male
  Weight: 63.5 kg

DRUGS (3)
  1. IRINOTECAN HYDROCHLORIDE [Suspect]
     Active Substance: IRINOTECAN HYDROCHLORIDE
     Indication: Pancreatic carcinoma
     Dosage: 0.2 G, 1X/DAY
     Route: 041
     Dates: start: 20220409, end: 20220409
  2. IRINOTECAN HYDROCHLORIDE [Suspect]
     Active Substance: IRINOTECAN HYDROCHLORIDE
     Indication: Pancreatic carcinoma
     Dosage: 20 MG, TWO TIMES TWO DAYS
     Route: 041
     Dates: start: 20220409, end: 20220409
  3. SODIUM CHLORIDE [Concomitant]
     Active Substance: SODIUM CHLORIDE
     Indication: Pancreatic carcinoma
     Dosage: 250 ML, 1X/DAY
     Route: 041
     Dates: start: 20220409, end: 20220409

REACTIONS (2)
  - Hyperhidrosis [Recovering/Resolving]
  - Abdominal pain [Recovering/Resolving]

NARRATIVE: CASE EVENT DATE: 20220409
